FAERS Safety Report 23874971 (Version 1)
Quarter: 2024Q2

REPORT INFORMATION
  Report Type: Spontaneous
  Country: US (occurrence: None)
  Receive Date: 20240518
  Receipt Date: 20240518
  Transmission Date: 20240716
  Serious: Yes (Congenital Anomaly)
  Sender: FDA-Public Use
  Company Number: None

PATIENT
  Age: 30 Year
  Sex: Female
  Weight: 82.8 kg

DRUGS (2)
  1. WEGOVY [Suspect]
     Active Substance: SEMAGLUTIDE
     Indication: Obesity
     Dosage: OTHER QUANTITY : 1 INJECTION(S);?OTHER FREQUENCY : WEEKLY;?
     Route: 058
     Dates: start: 20221130, end: 20230601
  2. Prenatal (MultiVItamin) [Concomitant]

REACTIONS (9)
  - Pregnancy [None]
  - Exposure during pregnancy [None]
  - Congenital anomaly [None]
  - Maternal drugs affecting foetus [None]
  - Spina bifida [None]
  - Talipes [None]
  - Developmental hip dysplasia [None]
  - Congenital knee dislocation [None]
  - Congenital genitourinary abnormality [None]

NARRATIVE: CASE EVENT DATE: 20230601
